FAERS Safety Report 20507277 (Version 1)
Quarter: 2022Q1

REPORT INFORMATION
  Report Type: Spontaneous
  Country: US (occurrence: US)
  Receive Date: 20220223
  Receipt Date: 20220223
  Transmission Date: 20220423
  Serious: No
  Sender: FDA-Public Use
  Company Number: US-BRACCO-2021US02595

PATIENT
  Age: 78 Year
  Sex: Female

DRUGS (1)
  1. ISOVUE 200 [Suspect]
     Active Substance: IOPAMIDOL
     Indication: Diagnostic procedure
     Dosage: UNKNOWN
     Route: 058
     Dates: start: 20210618, end: 20210618

REACTIONS (2)
  - Wrong product administered [Recovered/Resolved]
  - No adverse event [Recovered/Resolved]

NARRATIVE: CASE EVENT DATE: 20210618
